FAERS Safety Report 10330494 (Version 4)
Quarter: 2014Q3

REPORT INFORMATION
  Report Type: Spontaneous
  Country: US (occurrence: US)
  Receive Date: 20140722
  Receipt Date: 20140930
  Transmission Date: 20150326
  Serious: Yes (Other)
  Sender: FDA-Public Use
  Company Number: US-009507513-1407USA007469

PATIENT
  Age: 29 Year
  Sex: Female
  Weight: 78.91 kg

DRUGS (1)
  1. IMPLANON [Suspect]
     Active Substance: ETONOGESTREL
     Indication: CONTRACEPTION
     Dosage: UNK
     Route: 059
     Dates: start: 20120612, end: 20140715

REACTIONS (8)
  - Device dislocation [Recovered/Resolved]
  - Liver disorder [Recovered/Resolved]
  - Weight increased [Recovered/Resolved]
  - Cholecystectomy [Recovered/Resolved]
  - Encapsulation reaction [Recovered/Resolved]
  - Device difficult to use [Recovered/Resolved]
  - Gallbladder disorder [Recovered/Resolved]
  - Gastrointestinal disorder [Recovered/Resolved]

NARRATIVE: CASE EVENT DATE: 20140614
